FAERS Safety Report 8447881-2 (Version None)
Quarter: 2012Q2

REPORT INFORMATION
  Report Type: 
  Country: None (occurrence: None)
  Receive Date: 20120612
  Receipt Date: 20120531
  Transmission Date: 20120825
  Serious: Yes (Hospitalization)
  Sender: FDA-Public Use
  Company Number: UTC-018831

PATIENT
  Age: 65 Year
  Sex: Female
  Weight: 46.36 kg

DRUGS (2)
  1. REMODULIN [Suspect]
     Indication: PULMONARY ARTERIAL HYPERTENSION
     Dosage: 240.48 UG/KG (0.167 UG/KG, 1 IN 1 MIN), SUBCUTANEOUS
     Route: 058
     Dates: start: 20080110
  2. TRACLEER [Concomitant]

REACTIONS (2)
  - INFUSION SITE INFECTION [None]
  - ESCHERICHIA INFECTION [None]
